FAERS Safety Report 5245717-4 (Version None)
Quarter: 2007Q1

REPORT INFORMATION
  Report Type: 
  Country: None (occurrence: None)
  Receive Date: 20070223
  Receipt Date: 20070213
  Transmission Date: 20070707
  Serious: Yes (Other)
  Sender: FDA-Public Use
  Company Number: BR-PFIZER INC-2007012610

PATIENT
  Age: 50 Year
  Sex: Female

DRUGS (4)
  1. NORVASC [Suspect]
     Route: 048
     Dates: start: 20070207, end: 20070207
  2. ALENDRONATE SODIUM [Concomitant]
     Indication: OSTEOPOROSIS
     Route: 048
     Dates: start: 20070101, end: 20070201
  3. FLUOXETINE [Concomitant]
     Indication: PANIC REACTION
     Dates: start: 20070101
  4. SOY ISOFLAVONES [Concomitant]
     Indication: MENOPAUSE

REACTIONS (6)
  - HEADACHE [None]
  - HYPOTENSION [None]
  - MALAISE [None]
  - MEDICATION ERROR [None]
  - OEDEMA PERIPHERAL [None]
  - RENAL PAIN [None]
